FAERS Safety Report 19654396 (Version 1)
Quarter: 2021Q3

REPORT INFORMATION
  Report Type: Spontaneous
  Country: RU (occurrence: RU)
  Receive Date: 20210804
  Receipt Date: 20210804
  Transmission Date: 20211014
  Serious: Yes (Hospitalization, Other)
  Sender: FDA-Public Use
  Company Number: RU-NOVOPROD-818502

PATIENT
  Age: 57 Year
  Sex: Female
  Weight: 68 kg

DRUGS (11)
  1. LEVEMIR [Concomitant]
     Active Substance: INSULIN DETEMIR
     Indication: DIABETES MELLITUS
     Dosage: 12 IU, TID
     Route: 058
     Dates: end: 202105
  2. LOSARTAN. [Concomitant]
     Active Substance: LOSARTAN
     Indication: HYPERTENSION
     Dosage: UNK
     Route: 065
  3. AMLODIPINE [Concomitant]
     Active Substance: AMLODIPINE BESYLATE
     Indication: HYPERTENSION
     Dosage: UNK
     Route: 065
  4. BISOPROLOL [Concomitant]
     Active Substance: BISOPROLOL
     Indication: MYOCARDIAL ISCHAEMIA
  5. BISOPROLOL [Concomitant]
     Active Substance: BISOPROLOL
     Indication: HYPERTENSION
     Dosage: UNK
     Route: 065
  6. TRESIBA [Concomitant]
     Active Substance: INSULIN DEGLUDEC
     Indication: TYPE 2 DIABETES MELLITUS
     Dosage: UNK
     Route: 065
     Dates: start: 202105
  7. FIASP [Suspect]
     Active Substance: INSULIN ASPART
     Dosage: UNK (DOSE INCREASED)
     Route: 058
  8. FIASP [Suspect]
     Active Substance: INSULIN ASPART
     Indication: TYPE 2 DIABETES MELLITUS
     Dosage: 24 IU PER DAY: 8 ? 8 ? 8
     Route: 058
     Dates: start: 20210419
  9. ROSUVASTATIN. [Concomitant]
     Active Substance: ROSUVASTATIN
     Indication: ARTERIOSCLEROSIS
     Dosage: UNK
     Route: 065
  10. THROMBO ASS [Concomitant]
     Active Substance: ASPIRIN
     Indication: MYOCARDIAL ISCHAEMIA
     Dosage: UNK
     Route: 065
  11. AMLODIPINE [Concomitant]
     Active Substance: AMLODIPINE BESYLATE
     Indication: MYOCARDIAL ISCHAEMIA

REACTIONS (4)
  - Blood glucose increased [Recovered/Resolved]
  - Condition aggravated [Unknown]
  - Drug ineffective [Recovered/Resolved]
  - Pyelonephritis chronic [Unknown]

NARRATIVE: CASE EVENT DATE: 202104
